FAERS Safety Report 17042132 (Version 2)
Quarter: 2019Q4

REPORT INFORMATION
  Report Type: Spontaneous
  Country: CO (occurrence: CO)
  Receive Date: 20191118
  Receipt Date: 20191129
  Transmission Date: 20200122
  Serious: Yes (Hospitalization, Other)
  Sender: FDA-Public Use
  Company Number: CO-SA-2019SA316401

PATIENT
  Age: 14 Day
  Sex: Male
  Weight: 2.32 kg

DRUGS (1)
  1. CEREZYME [Suspect]
     Active Substance: IMIGLUCERASE
     Indication: GAUCHER^S DISEASE
     Dosage: 9 DF, QOW EVERY 2 WEEKS
     Route: 064
     Dates: start: 20190711

REACTIONS (5)
  - Foetal growth restriction [Unknown]
  - Bronchiolitis [Recovered/Resolved]
  - Wheezing [Recovered/Resolved]
  - Cough [Recovered/Resolved]
  - Low birth weight baby [Unknown]

NARRATIVE: CASE EVENT DATE: 20191029
